FAERS Safety Report 10136956 (Version 1)
Quarter: 2014Q2

REPORT INFORMATION
  Report Type: Spontaneous
  Country: GB (occurrence: None)
  Receive Date: 20140425
  Receipt Date: 20140425
  Transmission Date: 20141212
  Serious: Yes (Other)
  Sender: FDA-Public Use
  Company Number: VAL_03081_2014

PATIENT
  Age: 36 Year
  Sex: Female

DRUGS (2)
  1. METOPROLOL (METOPROLOL - METOPROLOL TARTRATE) [Suspect]
     Indication: ARRHYTHMIA
     Dosage: DF ORAL
     Route: 048
  2. VERAPAMIL (VERAPAMIL) [Suspect]
     Indication: ARRHYTHMIA
     Dosage: DF ORAL
     Route: 048

REACTIONS (6)
  - Palpitations [None]
  - Presyncope [None]
  - Ventricular tachycardia [None]
  - Hypotension [None]
  - Caesarean section [None]
  - Drug ineffective [None]
